FAERS Safety Report 7844837-5 (Version None)
Quarter: 2011Q4

REPORT INFORMATION
  Report Type: 
  Country: None (occurrence: None)
  Receive Date: 20111025
  Receipt Date: 20111017
  Transmission Date: 20120403
  Serious: Yes (Other)
  Sender: FDA-Public Use
  Company Number: SE-GLAXOSMITHKLINE-B0711838A

PATIENT
  Sex: Male
  Weight: 7.5 kg

DRUGS (2)
  1. ALVEDON [Concomitant]
     Route: 065
  2. VENTOLIN [Suspect]
     Indication: COUGH
     Dosage: 1.5ML SEE DOSAGE TEXT
     Route: 065
     Dates: start: 20110313, end: 20110314

REACTIONS (4)
  - RECTAL HAEMORRHAGE [None]
  - ERYTHEMA [None]
  - DRUG ADMINISTRATION ERROR [None]
  - SKIN IRRITATION [None]
